FAERS Safety Report 9692755 (Version 2)
Quarter: 2013Q4

REPORT INFORMATION
  Report Type: Spontaneous
  Country: US (occurrence: US)
  Receive Date: 20131118
  Receipt Date: 20131122
  Transmission Date: 20140711
  Serious: Yes (Hospitalization)
  Sender: FDA-Public Use
  Company Number: US-JNJFOC-20131106318

PATIENT
  Sex: Male
  Weight: 72.58 kg

DRUGS (3)
  1. REMICADE [Suspect]
     Indication: CROHN^S DISEASE
     Dosage: 5000 (UNITS UNSPECIFIED)
     Route: 042
  2. REMICADE [Suspect]
     Indication: CROHN^S DISEASE
     Dosage: 1500 (UNITS UNSPECIFIED)
     Route: 042
     Dates: start: 201008
  3. PENTASA [Concomitant]
     Indication: CROHN^S DISEASE
     Route: 048

REACTIONS (8)
  - Pneumonia legionella [Unknown]
  - Paralysis [Recovered/Resolved]
  - Somnolence [Unknown]
  - Infusion related reaction [Unknown]
  - Pain [Unknown]
  - Malaise [Unknown]
  - Fatigue [Unknown]
  - Ill-defined disorder [Unknown]
